FAERS Safety Report 7554544-4 (Version None)
Quarter: 2011Q2

REPORT INFORMATION
  Report Type: 
  Country: None (occurrence: None)
  Receive Date: 20110617
  Receipt Date: 20110608
  Transmission Date: 20111010
  Serious: Yes (Hospitalization, Other)
  Sender: FDA-Public Use
  Company Number: US-ASTRAZENECA-2011SE35293

PATIENT
  Age: 86 Year
  Sex: Female

DRUGS (1)
  1. ARIMIDEX [Suspect]
     Route: 048

REACTIONS (5)
  - NASOPHARYNGITIS [None]
  - ELECTROCARDIOGRAM [None]
  - CARDIAC DISORDER [None]
  - ACCIDENT [None]
  - CARDIAC ASSISTANCE DEVICE USER [None]
